FAERS Safety Report 26109727 (Version 1)
Quarter: 2025Q4

REPORT INFORMATION
  Report Type: Spontaneous
  Country: CN (occurrence: CN)
  Receive Date: 20251201
  Receipt Date: 20251201
  Transmission Date: 20260118
  Serious: Yes (Hospitalization, Disabling)
  Sender: BAYER HEALTHCARE PHARMACEUTICALS INC.
  Company Number: CN-BAYER-2025A156726

PATIENT
  Age: 71 Year
  Sex: Male
  Weight: 72 kg

DRUGS (1)
  1. STIVARGA [Suspect]
     Active Substance: REGORAFENIB MONOHYDRATE
     Indication: Colorectal cancer
     Dosage: 160 MG, QD
     Route: 048
     Dates: start: 20250929, end: 20251019

REACTIONS (2)
  - Chronic kidney disease [Recovering/Resolving]
  - Blood potassium increased [Recovering/Resolving]

NARRATIVE: CASE EVENT DATE: 20251023
